FAERS Safety Report 4716858-2 (Version None)
Quarter: 2005Q3

REPORT INFORMATION
  Report Type: 
  Country: None (occurrence: None)
  Receive Date: 20050714
  Receipt Date: 20050630
  Transmission Date: 20060218
  Serious: Yes (Hospitalization)
  Sender: FDA-Public Use
  Company Number: S05-FIN-01079-01

PATIENT
  Age: 71 Year
  Sex: Male

DRUGS (7)
  1. CITALOPRAM HYDROBROMIDE [Suspect]
     Indication: DEPRESSION
     Dosage: 20 MG QD PO
     Route: 048
     Dates: start: 20040901, end: 20050220
  2. MEMANTINE HCL [Suspect]
     Indication: DEMENTIA ALZHEIMER'S TYPE
     Dosage: 10 MG BID PO
     Route: 048
     Dates: start: 20041001, end: 20050220
  3. FUROSEMIDE [Concomitant]
  4. PRIMASPAN (ACETYLSALICYLIC ACID) [Concomitant]
  5. OBSIDAN (FERROUS GLYCINE SULFATE) [Concomitant]
  6. PROTAPHAN (INSULIN ISOPHANE, HUMAN BIOSYNTHETIC) [Concomitant]
  7. KONAKION [Concomitant]

REACTIONS (8)
  - ALANINE AMINOTRANSFERASE INCREASED [None]
  - BLOOD ALKALINE PHOSPHATASE INCREASED [None]
  - BLOOD CREATININE INCREASED [None]
  - DEPRESSED LEVEL OF CONSCIOUSNESS [None]
  - FLUID RETENTION [None]
  - GALLBLADDER DISORDER [None]
  - GENERAL PHYSICAL CONDITION ABNORMAL [None]
  - HEPATIC ENZYME INCREASED [None]
